FAERS Safety Report 19086054 (Version 1)
Quarter: 2021Q2

REPORT INFORMATION
  Report Type: Report from Study
  Country: US (occurrence: US)
  Receive Date: 20210402
  Receipt Date: 20210402
  Transmission Date: 20210717
  Serious: Yes (Hospitalization, Other)
  Sender: FDA-Public Use
  Company Number: US-PFIZER INC-2021338378

PATIENT
  Sex: Female
  Weight: 51.7 kg

DRUGS (7)
  1. MERCAPTOPURINE. [Suspect]
     Active Substance: MERCAPTOPURINE
     Dosage: 60 MG/M2, ON DAYS 1?14 AND 29?42.
     Route: 048
     Dates: start: 20210223, end: 20210308
  2. METHOTREXATE SODIUM. [Suspect]
     Active Substance: METHOTREXATE SODIUM
     Dosage: 15 MG (ADDITION OF 50 MG OF HYDROCORTISONE OPTIONAL PER INSTITUTIONAL GUIDELINES) ON DAYS 1, 8
     Route: 037
     Dates: start: 20210222, end: 20210315
  3. ONCASPAR [Suspect]
     Active Substance: PEGASPARGASE
     Dosage: 2000 IU/M2 ON DAYS 15 AND 43. (CAP DOSE AT 3750 IU).
     Route: 042
     Dates: start: 20210308, end: 20210308
  4. VINCRISTINE SULFATE. [Suspect]
     Active Substance: VINCRISTINE SULFATE
     Dosage: 1.5 MG/M2 (MAXIMUM 2 MG) ON DAYS 15, 22, 43, AND 50.
     Route: 042
     Dates: start: 20210308, end: 20210315
  5. CYTARABINE. [Suspect]
     Active Substance: CYTARABINE
     Dosage: 75 MG/M2, IV OR SC ON DAYS 1?4, 8?11, 29?32, AND 36?39
     Dates: start: 20210222, end: 20210304
  6. INOTUZUMAB OZOGAMICIN [Suspect]
     Active Substance: INOTUZUMAB OZOGAMICIN
     Dosage: UNK
     Dates: start: 20201222, end: 20210202
  7. CYCLOPHOSPHAMIDE. [Suspect]
     Active Substance: CYCLOPHOSPHAMIDE
     Dosage: 1000 MG/M2, ON DAY 1 AND 29.
     Route: 042
     Dates: start: 20210222, end: 20210222

REACTIONS (3)
  - Febrile neutropenia [Recovering/Resolving]
  - Headache [Recovering/Resolving]
  - Nausea [Recovering/Resolving]

NARRATIVE: CASE EVENT DATE: 20210318
